FAERS Safety Report 4536315-6 (Version None)
Quarter: 2004Q4

REPORT INFORMATION
  Report Type: 
  Country: None (occurrence: None)
  Receive Date: 20041223
  Receipt Date: 20040629
  Transmission Date: 20050328
  Serious: No
  Sender: FDA-Public Use
  Company Number: US-GLAXOSMITHKLINE-A0516453A

PATIENT
  Age: 38 Year
  Sex: Female

DRUGS (1)
  1. FLONASE [Suspect]
     Dosage: 2PUFF PER DAY
     Route: 045

REACTIONS (2)
  - FEELING ABNORMAL [None]
  - NAUSEA [None]
